FAERS Safety Report 19544275 (Version 1)
Quarter: 2021Q3

REPORT INFORMATION
  Report Type: Report from Study
  Country: US (occurrence: US)
  Receive Date: 20210714
  Receipt Date: 20210714
  Transmission Date: 20211014
  Serious: Yes (Other)
  Sender: FDA-Public Use
  Company Number: US-CIPLA LTD.-2021US04968

PATIENT

DRUGS (4)
  1. AZACITIDINE. [Suspect]
     Active Substance: AZACITIDINE
     Indication: PLASMA CELL MYELOMA
     Dosage: 30 MILLIGRAM/SQ. METER, BIWEEKLY
     Route: 058
  2. AZACITIDINE. [Suspect]
     Active Substance: AZACITIDINE
     Dosage: 40 MILLIGRAM/SQ. METER, BIWEEKLY
     Route: 058
  3. DEXAMETHASONE. [Suspect]
     Active Substance: DEXAMETHASONE
     Indication: PLASMA CELL MYELOMA
     Dosage: 40 MG, QW, (WEEKLY EVERY 28 DAYS)
     Route: 048
  4. LENALIDOMIDE [Suspect]
     Active Substance: LENALIDOMIDE
     Indication: PLASMA CELL MYELOMA
     Dosage: 25 MILLIGRAM, QD (ON DAYS 1?21, EVERY 28 DAYS)
     Route: 048

REACTIONS (2)
  - Toxicity to various agents [Unknown]
  - Febrile neutropenia [Unknown]
